FAERS Safety Report 15263318 (Version 1)
Quarter: 2018Q3

REPORT INFORMATION
  Report Type: Spontaneous
  Country: US (occurrence: US)
  Receive Date: 20180810
  Receipt Date: 20180810
  Transmission Date: 20181010
  Serious: Yes (Death)
  Sender: FDA-Public Use
  Company Number: US-ZYDUS-021040

PATIENT
  Age: 86 Year
  Sex: Female

DRUGS (4)
  1. LOSARTAN. [Concomitant]
     Active Substance: LOSARTAN
     Indication: HYPERTENSION
     Route: 065
  2. CARVEDILOL/CARVEDILOL HYDROCHLODRIDE [Suspect]
     Active Substance: CARVEDILOL HYDROCHLORIDE
     Indication: CARDIAC FAILURE CONGESTIVE
     Route: 048
     Dates: start: 201805
  3. ASPIRIN. [Concomitant]
     Active Substance: ASPIRIN
     Indication: PRODUCT USED FOR UNKNOWN INDICATION
     Route: 065
  4. SIMVASTATIN. [Concomitant]
     Active Substance: SIMVASTATIN
     Indication: HYPERCHOLESTEROLAEMIA
     Route: 065

REACTIONS (19)
  - Decreased appetite [Unknown]
  - Thirst [Unknown]
  - Dry mouth [Unknown]
  - Asthenia [Unknown]
  - Dyspnoea [Unknown]
  - Contusion [Unknown]
  - Rhinorrhoea [Unknown]
  - Nightmare [Unknown]
  - Movement disorder [Unknown]
  - Diarrhoea [Unknown]
  - Fatigue [Unknown]
  - Somnolence [Unknown]
  - Respiratory rate increased [Fatal]
  - Chronic obstructive pulmonary disease [Fatal]
  - Fall [Unknown]
  - Chronic obstructive pulmonary disease [None]
  - Nasal congestion [Unknown]
  - Peripheral coldness [Unknown]
  - Muscular weakness [Unknown]

NARRATIVE: CASE EVENT DATE: 201805
